FAERS Safety Report 10108607 (Version 2)
Quarter: 2014Q2

REPORT INFORMATION
  Report Type: Spontaneous
  Country: US (occurrence: US)
  Receive Date: 20140425
  Receipt Date: 20140527
  Transmission Date: 20141212
  Serious: Yes (Other)
  Sender: FDA-Public Use
  Company Number: US-ROCHE-1389301

PATIENT
  Sex: Female
  Weight: 115.77 kg

DRUGS (18)
  1. MONTELUKAST SODIUM [Concomitant]
     Route: 048
  2. PERCOCET [Concomitant]
     Dosage: 5-325 MG
     Route: 048
  3. OMEPRAZOLE [Concomitant]
     Route: 048
  4. XOLAIR [Suspect]
     Indication: ASTHMA
     Dosage: 1.8 ML
     Route: 058
     Dates: start: 20070502
  5. PREDNISONE [Concomitant]
  6. DULERA [Concomitant]
  7. THEOPHYLLINE [Concomitant]
  8. ALBUTEROL [Concomitant]
     Route: 065
  9. SPIRIVA [Concomitant]
  10. EPIPEN 2-PAK [Concomitant]
     Dosage: 0.3 MG/ 0.3 ML
     Route: 065
  11. PROVENTIL HFA [Concomitant]
     Dosage: AS NEEDED
     Route: 065
  12. DIOVAN [Concomitant]
     Route: 048
  13. XOPENEX HFA [Concomitant]
     Dosage: 45 MCG/ACT INHALATION AEROSOL
     Route: 065
  14. TRIAMCINOLONE ACETONIDE [Concomitant]
  15. CLOBETASOL PROPIONATE OINTMENT [Concomitant]
  16. FLUTICASONE [Concomitant]
     Dosage: 50 MCG/ACT
     Route: 065
  17. THEO-24 [Concomitant]
     Route: 048
  18. BUDESONIDE [Concomitant]
     Route: 048

REACTIONS (4)
  - Renal disorder [Unknown]
  - Sleep apnoea syndrome [Unknown]
  - Gastrooesophageal reflux disease [Unknown]
  - Dyspnoea [Unknown]
